FAERS Safety Report 21806289 (Version 2)
Quarter: 2023Q1

REPORT INFORMATION
  Report Type: Spontaneous
  Country: US (occurrence: US)
  Receive Date: 20230102
  Receipt Date: 20230105
  Transmission Date: 20230418
  Serious: No
  Sender: FDA-Public Use
  Company Number: US-BRISTOL-MYERS SQUIBB COMPANY-2023-000248

PATIENT
  Age: 73 Year
  Sex: Male

DRUGS (1)
  1. REVLIMID [Suspect]
     Active Substance: LENALIDOMIDE
     Indication: Brain neoplasm malignant
     Route: 048
     Dates: start: 20221026

REACTIONS (4)
  - Product dose omission issue [Unknown]
  - Platelet count decreased [Unknown]
  - Off label use [Unknown]
  - Off label use [Unknown]
